FAERS Safety Report 7642364-1 (Version None)
Quarter: 2011Q3

REPORT INFORMATION
  Report Type: 
  Country: None (occurrence: None)
  Receive Date: 20110722
  Receipt Date: 20110712
  Transmission Date: 20111222
  Serious: Yes (Hospitalization)
  Sender: FDA-Public Use
  Company Number: 2011SP032523

PATIENT
  Age: 84 Year
  Sex: Female

DRUGS (7)
  1. SIMVASTATIN [Concomitant]
  2. NITRAZEPAM [Concomitant]
  3. CALCIUM ACETATE [Concomitant]
  4. VASERETIC [Suspect]
     Indication: PRODUCT USED FOR UNKNOWN INDICATION
     Dosage: ;PO
     Route: 048
  5. ALENDRONIC ACID [Concomitant]
  6. REMERON [Suspect]
     Indication: PRODUCT USED FOR UNKNOWN INDICATION
     Dosage: 15 MG;QD;PO
  7. ACETAMINOPHEN [Concomitant]

REACTIONS (6)
  - BLOOD POTASSIUM DECREASED [None]
  - DELIRIUM [None]
  - DIZZINESS [None]
  - BLOOD PRESSURE ORTHOSTATIC INCREASED [None]
  - HYPONATRAEMIA [None]
  - ATRIAL FLUTTER [None]
